FAERS Safety Report 8378173-8 (Version None)
Quarter: 2012Q2

REPORT INFORMATION
  Report Type: 
  Country: None (occurrence: None)
  Receive Date: 20120522
  Receipt Date: 20120517
  Transmission Date: 20120825
  Serious: No
  Sender: FDA-Public Use
  Company Number: US-PFIZER INC-2012120827

PATIENT
  Sex: Male
  Weight: 95 kg

DRUGS (4)
  1. METOPROLOL [Concomitant]
     Indication: HYPERTENSION
     Dosage: UNK, 1X/DAY
  2. XANAX [Concomitant]
     Indication: POST-TRAUMATIC STRESS DISORDER
     Dosage: UNK
  3. NICOTROL [Suspect]
     Indication: SMOKING CESSATION THERAPY
     Dosage: UNK, AS NEEDED
     Route: 055
     Dates: start: 20120503
  4. LISINOPRIL [Concomitant]
     Indication: HYPERTENSION
     Dosage: UNK

REACTIONS (2)
  - HICCUPS [None]
  - COUGH [None]
